FAERS Safety Report 25468071 (Version 2)
Quarter: 2025Q2

REPORT INFORMATION
  Report Type: Spontaneous
  Country: JP (occurrence: JP)
  Receive Date: 20250623
  Receipt Date: 20250625
  Transmission Date: 20250717
  Serious: Yes (Other)
  Sender: SANOFI AVENTIS
  Company Number: JP-MEIJISEIKA-202503673_P_1

PATIENT
  Age: 4 Decade
  Sex: Male

DRUGS (1)
  1. REZUROCK [Suspect]
     Active Substance: BELUMOSUDIL
     Dosage: 200 MG, QD
     Route: 048

REACTIONS (8)
  - Pulmonary alveolar haemorrhage [Unknown]
  - Cholangitis [Unknown]
  - Full blood count decreased [Unknown]
  - Septic shock [Unknown]
  - Cytomegalovirus chorioretinitis [Unknown]
  - Flushing [Unknown]
  - Pyrexia [Unknown]
  - Blood pressure decreased [Unknown]
